FAERS Safety Report 20458760 (Version 3)
Quarter: 2022Q1

REPORT INFORMATION
  Report Type: Spontaneous
  Country: DE (occurrence: DE)
  Receive Date: 20220211
  Receipt Date: 20220215
  Transmission Date: 20220423
  Serious: Yes (Death, Hospitalization)
  Sender: FDA-Public Use
  Company Number: None

PATIENT
  Age: 52 Year
  Sex: Female

DRUGS (2)
  1. RINVOQ [Suspect]
     Active Substance: UPADACITINIB
     Indication: Ankylosing spondylitis
     Dosage: 15MG / TAG/RETARD TABLETS
     Route: 048
     Dates: start: 20211001, end: 20220108
  2. METHOTREXATE SODIUM [Concomitant]
     Active Substance: METHOTREXATE SODIUM
     Indication: Ankylosing spondylitis
     Dates: start: 2015

REACTIONS (3)
  - Pneumonitis [Fatal]
  - Dyspnoea exertional [Fatal]
  - Respiratory failure [Fatal]

NARRATIVE: CASE EVENT DATE: 20220108
